FAERS Safety Report 17613968 (Version 1)
Quarter: 2020Q2

REPORT INFORMATION
  Report Type: Spontaneous
  Country: US (occurrence: US)
  Receive Date: 20200402
  Receipt Date: 20200402
  Transmission Date: 20200713
  Serious: No
  Sender: FDA-Public Use
  Company Number: US-GW PHARMA-202003USGW01230

PATIENT

DRUGS (3)
  1. EPIDIOLEX [Suspect]
     Active Substance: CANNABIDIOL
     Indication: LENNOX-GASTAUT SYNDROME
     Dosage: 2.4 MG/KG/DOSE, 270 MILLIGRAM, BID
     Route: 048
     Dates: start: 20190926
  2. EPIDIOLEX [Suspect]
     Active Substance: CANNABIDIOL
     Dosage: 540 MILLIGRAM, BID
     Route: 048
  3. EPIDIOLEX [Suspect]
     Active Substance: CANNABIDIOL
     Dosage: 2.4 MG/KG/DOSE, 270 MILLIGRAM, BID
     Route: 048

REACTIONS (1)
  - Seizure [Unknown]
